FAERS Safety Report 15354277 (Version 1)
Quarter: 2018Q3

REPORT INFORMATION
  Report Type: Spontaneous
  Country: US (occurrence: US)
  Receive Date: 20180906
  Receipt Date: 20180906
  Transmission Date: 20181010
  Serious: No
  Sender: FDA-Public Use
  Company Number: US-STRIDES ARCOLAB LIMITED-2018SP000956

PATIENT

DRUGS (4)
  1. BUSPIRONE HYDROCHLORIDE. [Suspect]
     Active Substance: BUSPIRONE HYDROCHLORIDE
     Indication: DYSPHAGIA
  2. PLACEBO [Concomitant]
     Active Substance: UNSPECIFIED INGREDIENT
     Indication: OESOPHAGEAL MOTILITY DISORDER
     Dosage: UNK, TID
     Route: 065
  3. BUSPIRONE HYDROCHLORIDE. [Suspect]
     Active Substance: BUSPIRONE HYDROCHLORIDE
     Indication: OESOPHAGEAL MOTILITY DISORDER
     Dosage: 10 MG, TID
     Route: 065
  4. PLACEBO [Concomitant]
     Active Substance: UNSPECIFIED INGREDIENT
     Indication: DYSPHAGIA

REACTIONS (1)
  - Off label use [Unknown]
